FAERS Safety Report 4957584-4 (Version None)
Quarter: 2006Q1

REPORT INFORMATION
  Report Type: 
  Country: None (occurrence: None)
  Receive Date: 20060324
  Receipt Date: 20060309
  Transmission Date: 20060701
  Serious: Yes (Other)
  Sender: FDA-Public Use
  Company Number: 2006SS000035

PATIENT
  Age: 73 Year
  Sex: Male

DRUGS (9)
  1. MYOBLOC [Suspect]
     Indication: MUSCLE SPASMS
     Dosage: 5000 U; IM
     Route: 030
     Dates: start: 20060221, end: 20060221
  2. MYOBLOC [Suspect]
     Indication: OFF LABEL USE
     Dosage: 5000 U; IM
     Route: 030
     Dates: start: 20060221, end: 20060221
  3. MYOBLOC [Suspect]
     Indication: PAIN
     Dosage: 5000 U; IM
     Route: 030
     Dates: start: 20060221, end: 20060221
  4. PREVACID [Concomitant]
  5. TYLENOL (CAPLET) [Concomitant]
  6. ZETIA [Concomitant]
  7. ASCORBIC ACID [Concomitant]
  8. MUCINEX [Concomitant]
  9. ULTRAM [Concomitant]

REACTIONS (1)
  - GLOBAL AMNESIA [None]
